FAERS Safety Report 6873433-1 (Version None)
Quarter: 2010Q3

REPORT INFORMATION
  Report Type: 
  Country: None (occurrence: None)
  Receive Date: 20100723
  Receipt Date: 20090123
  Transmission Date: 20110219
  Serious: No
  Sender: FDA-Public Use
  Company Number: US-PFIZER INC-2009160813

PATIENT
  Sex: Female
  Weight: 69 kg

DRUGS (4)
  1. CHANTIX [Suspect]
     Indication: SMOKING CESSATION THERAPY
     Dosage: 1 MG, 2X/DAY
     Route: 048
     Dates: start: 20090101
  2. LOTENSIN [Concomitant]
  3. PAXIL [Concomitant]
  4. NAVANE [Concomitant]

REACTIONS (1)
  - SOMNOLENCE [None]
